FAERS Safety Report 14313393 (Version 1)
Quarter: 2017Q4

REPORT INFORMATION
  Report Type: Spontaneous
  Country: US (occurrence: US)
  Receive Date: 20171220
  Receipt Date: 20171220
  Transmission Date: 20180321
  Serious: Yes (Disabling)
  Sender: FDA-Public Use
  Company Number: None

PATIENT
  Age: 69 Year
  Sex: Female
  Weight: 78.75 kg

DRUGS (12)
  1. PRAVACHOL [Concomitant]
     Active Substance: PRAVASTATIN SODIUM
  2. BIOTIN [Concomitant]
     Active Substance: BIOTIN
  3. VIVISCAL [Concomitant]
  4. ACYCLOVIR. [Concomitant]
     Active Substance: ACYCLOVIR
  5. L-LYSINE [Concomitant]
     Active Substance: LYSINE
  6. REVEAL LINQ IMPLANTED CARDIAC MONITOR [Concomitant]
  7. CALCIUM WITH D3 [Concomitant]
  8. DILTIAZEM. [Concomitant]
     Active Substance: DILTIAZEM
  9. CARDIAC CLAMP [Concomitant]
  10. ROGAINE [Concomitant]
     Active Substance: MINOXIDIL
  11. DILTIAZEM HYDROCHLORIDE ER 120 MG ONCE A DAY DOSAGE. [Suspect]
     Active Substance: DILTIAZEM HYDROCHLORIDE
     Indication: HYPERTENSION
     Dosage: ?          QUANTITY:1 CAPSULE(S);?
     Route: 048
     Dates: start: 20171107, end: 20171109
  12. HYDROCHLOROTHIAZIDE. [Concomitant]
     Active Substance: HYDROCHLOROTHIAZIDE

REACTIONS (4)
  - Dyspnoea [None]
  - Dizziness [None]
  - Palpitations [None]
  - Sinus tachycardia [None]

NARRATIVE: CASE EVENT DATE: 20171107
